FAERS Safety Report 24201906 (Version 5)
Quarter: 2025Q2

REPORT INFORMATION
  Report Type: Report from Study
  Country: JP (occurrence: JP)
  Receive Date: 20240812
  Receipt Date: 20250522
  Transmission Date: 20250717
  Serious: Yes (Hospitalization)
  Sender: EISAI
  Company Number: JP-Eisai-202405813_LEQ_P_1

PATIENT
  Age: 70 Year
  Sex: Female
  Weight: 45 kg

DRUGS (3)
  1. LEQEMBI [Suspect]
     Active Substance: LECANEMAB-IRMB
     Indication: Dementia Alzheimer^s type
     Route: 042
     Dates: start: 20240610
  2. LUNESTA [Concomitant]
     Active Substance: ESZOPICLONE
     Indication: Cognitive disorder
  3. QUETIAPINE [Concomitant]
     Active Substance: QUETIAPINE
     Indication: Cognitive disorder

REACTIONS (1)
  - Infusion related reaction [Recovered/Resolved]

NARRATIVE: CASE EVENT DATE: 20240805
